FAERS Safety Report 24408968 (Version 5)
Quarter: 2025Q1

REPORT INFORMATION
  Report Type: Spontaneous
  Country: US (occurrence: US)
  Receive Date: 20241007
  Receipt Date: 20250106
  Transmission Date: 20250409
  Serious: No
  Sender: BRISTOL-MYERS SQUIBB COMPANY
  Company Number: US-EXELIXIS-EXL-2024-000040

PATIENT
  Age: 70 Year
  Sex: Male

DRUGS (6)
  1. OPDIVO [Suspect]
     Active Substance: NIVOLUMAB
     Indication: Renal cell carcinoma
     Dates: start: 202408
  2. CABOMETYX [Suspect]
     Active Substance: CABOZANTINIB S-MALATE
     Indication: Renal cell carcinoma
     Dosage: 40 MG, QD
     Dates: start: 202408
  3. CABOMETYX [Suspect]
     Active Substance: CABOZANTINIB S-MALATE
     Dosage: 40 MG, QD
  4. CABOMETYX [Suspect]
     Active Substance: CABOZANTINIB S-MALATE
     Dosage: 40 MG, QD
  5. LOSARTAN [Concomitant]
     Active Substance: LOSARTAN
     Indication: Product used for unknown indication
  6. CARVEDILOL [Concomitant]
     Active Substance: CARVEDILOL
     Indication: Product used for unknown indication

REACTIONS (13)
  - Blood pressure increased [Recovering/Resolving]
  - Fatigue [Unknown]
  - Hyperkeratosis [Recovering/Resolving]
  - Skin exfoliation [Unknown]
  - Muscle spasms [Unknown]
  - Sinus congestion [Recovered/Resolved]
  - Nasopharyngitis [Recovered/Resolved]
  - Gingival swelling [Unknown]
  - Arthralgia [Unknown]
  - Prostatic disorder [Unknown]
  - Gingival erythema [Unknown]
  - Blood glucose increased [Unknown]
  - Diarrhoea [Not Recovered/Not Resolved]
